FAERS Safety Report 7878790-5 (Version None)
Quarter: 2011Q4

REPORT INFORMATION
  Report Type: 
  Country: None (occurrence: None)
  Receive Date: 20111101
  Receipt Date: 20111026
  Transmission Date: 20120403
  Serious: Yes (Other)
  Sender: FDA-Public Use
  Company Number: US-BAYER-2011-104538

PATIENT
  Age: 40 Year
  Sex: Female

DRUGS (1)
  1. MIRENA [Suspect]
     Indication: CONTRACEPTION
     Dosage: UNK
     Route: 015
     Dates: start: 20070816, end: 20111024

REACTIONS (4)
  - HYSTERECTOMY [None]
  - DEVICE DISLOCATION [None]
  - DEVICE DIFFICULT TO USE [None]
  - UTERINE HAEMORRHAGE [None]
